FAERS Safety Report 16977047 (Version 1)
Quarter: 2019Q4

REPORT INFORMATION
  Report Type: Spontaneous
  Country: US (occurrence: US)
  Receive Date: 20190915
  Receipt Date: 20190915
  Transmission Date: 20200122
  Serious: No
  Sender: FDA-Public Use
  Company Number: None

PATIENT
  Age: 63 Year
  Sex: Male

DRUGS (1)
  1. STELARA [Suspect]
     Active Substance: USTEKINUMAB
     Route: 058
     Dates: start: 201908

REACTIONS (4)
  - Pyrexia [None]
  - Oropharyngeal pain [None]
  - Respiratory tract infection [None]
  - Cough [None]

NARRATIVE: CASE EVENT DATE: 20190915
